FAERS Safety Report 17514483 (Version 2)
Quarter: 2020Q1

REPORT INFORMATION
  Report Type: Spontaneous
  Country: GR (occurrence: GR)
  Receive Date: 20200307
  Receipt Date: 20200310
  Transmission Date: 20200409
  Serious: Yes (Other)
  Sender: FDA-Public Use
  Company Number: GR-ROCHE-2562596

PATIENT
  Age: 65 Year
  Sex: Male

DRUGS (1)
  1. MABTHERA [Suspect]
     Active Substance: RITUXIMAB
     Indication: RETROPERITONEAL FIBROSIS
     Route: 041

REACTIONS (7)
  - Vision blurred [Unknown]
  - Metamorphopsia [Unknown]
  - Off label use [Unknown]
  - Subretinal fluid [Recovering/Resolving]
  - Retinal oedema [Recovering/Resolving]
  - Retinal oedema [Unknown]
  - Intentional product use issue [Unknown]
